FAERS Safety Report 7122415-3 (Version None)
Quarter: 2010Q4

REPORT INFORMATION
  Report Type: 
  Country: None (occurrence: None)
  Receive Date: 20101112
  Receipt Date: 20101104
  Transmission Date: 20110411
  Serious: Yes (Life-Threatening, Disabling, Other)
  Sender: FDA-Public Use
  Company Number: 2010MA004291

PATIENT
  Age: 67 Year
  Sex: Female

DRUGS (10)
  1. AMLODIPINE BESYLATE [Suspect]
     Dates: start: 20071012
  2. LOSARTAN POTASSIUM [Suspect]
     Indication: HYPERTENSION
     Dosage: 100 MG;QD;PO
     Route: 048
     Dates: start: 20070221, end: 20100701
  3. ALENDRONIC ACID (ALENDRONIC ACID) [Suspect]
     Dosage: PO
     Route: 048
     Dates: start: 20071204
  4. FOSAMAX [Suspect]
     Dosage: PO
     Route: 048
     Dates: start: 20071012
  5. RISEDRONATE ACID (RISEDRONIC ACID) [Suspect]
     Dates: start: 20071204
  6. AMITRIPTYLINE HYDROCHLORIDE [Suspect]
     Dates: start: 20100216
  7. CIPROFLOXACIN [Suspect]
     Dates: start: 20071012
  8. AMITRIPTYLINE [Concomitant]
  9. LANSOPRAZOLE [Concomitant]
  10. PREV MEDS [Concomitant]

REACTIONS (9)
  - ABDOMINAL PAIN UPPER [None]
  - ARTHRALGIA [None]
  - CONDITION AGGRAVATED [None]
  - DIARRHOEA [None]
  - HEART RATE INCREASED [None]
  - HYPERTENSION [None]
  - IRRITABLE BOWEL SYNDROME [None]
  - NAUSEA [None]
  - PANIC ATTACK [None]
